FAERS Safety Report 25643353 (Version 2)
Quarter: 2025Q3

REPORT INFORMATION
  Report Type: Report from Study
  Country: US (occurrence: US)
  Receive Date: 20250805
  Receipt Date: 20250819
  Transmission Date: 20251020
  Serious: No
  Sender: SUNOVION
  Company Number: US-SUMITOMO PHARMA SWITZERLAND GMBH-2025SPA009771

PATIENT
  Age: 61 Year
  Sex: Male

DRUGS (16)
  1. ORGOVYX [Suspect]
     Active Substance: RELUGOLIX
     Indication: Prostate cancer
     Route: 048
  2. ORGOVYX [Suspect]
     Active Substance: RELUGOLIX
     Route: 048
  3. ALFUZOSIN [Concomitant]
     Active Substance: ALFUZOSIN
  4. ALLEGRA HIVES 24HR [Concomitant]
     Active Substance: FEXOFENADINE HYDROCHLORIDE
  5. ATORVASTATIN CALCIUM [Concomitant]
     Active Substance: ATORVASTATIN CALCIUM
  6. Daily Multivitamin men [Concomitant]
  7. ZINC OXIDE [Concomitant]
     Active Substance: ZINC OXIDE
  8. Dihydroberberine [Concomitant]
  9. DULOXETINE [Concomitant]
     Active Substance: DULOXETINE
  10. FLUTICASONE [Concomitant]
     Active Substance: FLUTICASONE
  11. ANTACID [Concomitant]
     Active Substance: ALUMINUM HYDROXIDE\CALCIUM CARBONATE\DIMETHICONE\MAGNESIUM HYDROXIDE
  12. ARGININE [Concomitant]
     Active Substance: ARGININE
  13. CITRULLINE [Concomitant]
     Active Substance: CITRULLINE
  14. OMEPRAZOLE [Concomitant]
     Active Substance: OMEPRAZOLE
  15. OXCARBAZEPINE [Concomitant]
     Active Substance: OXCARBAZEPINE
  16. VRAYLAR [Concomitant]
     Active Substance: CARIPRAZINE

REACTIONS (6)
  - Arthropod bite [Unknown]
  - Lethargy [Unknown]
  - Attention deficit hyperactivity disorder [Unknown]
  - Arthralgia [Unknown]
  - Depression [Unknown]
  - Fatigue [Unknown]
